FAERS Safety Report 21107213 (Version 1)
Quarter: 2022Q3

REPORT INFORMATION
  Report Type: Spontaneous
  Country: US (occurrence: None)
  Receive Date: 20220720
  Receipt Date: 20220720
  Transmission Date: 20221026
  Serious: No
  Sender: FDA-Public Use
  Company Number: None

PATIENT
  Age: 69 Year
  Sex: Female
  Weight: 56.7 kg

DRUGS (1)
  1. SKYRIZI [Suspect]
     Active Substance: RISANKIZUMAB-RZAA
     Indication: Psoriasis
     Dosage: FREQUENCY: AT WEEK 0 AND WEEK 4 AS DRECTED.
     Route: 058
     Dates: start: 202203

REACTIONS (4)
  - Urticaria [None]
  - Stress [None]
  - Ear pruritus [None]
  - Pruritus [None]
